FAERS Safety Report 25428288 (Version 1)
Quarter: 2025Q2

REPORT INFORMATION
  Report Type: Spontaneous
  Country: FR (occurrence: FR)
  Receive Date: 20250612
  Receipt Date: 20250612
  Transmission Date: 20250716
  Serious: Yes (Other)
  Sender: AMGEN
  Company Number: FR-AMGEN-FRASP2025112111

PATIENT

DRUGS (2)
  1. NPLATE [Suspect]
     Active Substance: ROMIPLOSTIM
     Indication: Immune thrombocytopenia
     Route: 065
  2. FOSTAMATINIB [Concomitant]
     Active Substance: FOSTAMATINIB

REACTIONS (2)
  - Myelofibrosis [Not Recovered/Not Resolved]
  - Immune thrombocytopenia [Unknown]
